FAERS Safety Report 17854291 (Version 7)
Quarter: 2022Q1

REPORT INFORMATION
  Report Type: Spontaneous
  Country: PL (occurrence: PL)
  Receive Date: 20200603
  Receipt Date: 20220314
  Transmission Date: 20220423
  Serious: Yes (Death, Life-Threatening, Hospitalization, Other)
  Sender: FDA-Public Use
  Company Number: PL-AUROBINDO-AUR-APL-2020-027155

PATIENT
  Age: 68 Year
  Sex: Male

DRUGS (28)
  1. BISOPROLOL [Suspect]
     Active Substance: BISOPROLOL
     Indication: Hypertension
     Dosage: UNK
     Route: 065
  2. RIVAROXABAN [Suspect]
     Active Substance: RIVAROXABAN
     Indication: Product used for unknown indication
     Dosage: 20 MILLIGRAM, ONCE A DAY
     Route: 065
     Dates: start: 201510
  3. RIVAROXABAN [Suspect]
     Active Substance: RIVAROXABAN
     Dosage: 300 MILLIGRAM
     Route: 065
  4. ASPIRIN [Suspect]
     Active Substance: ASPIRIN
     Indication: Acute coronary syndrome
     Dosage: 300 MILLIGRAM ONCE
     Route: 048
     Dates: start: 201608
  5. ASPIRIN [Suspect]
     Active Substance: ASPIRIN
     Dosage: 300 MILLIGRAM
     Route: 065
     Dates: start: 20160812
  6. CLOPIDOGREL [Suspect]
     Active Substance: CLOPIDOGREL BISULFATE
     Indication: Acute coronary syndrome
     Dosage: 600 MILLIGRAM ONCE
     Route: 048
     Dates: start: 201608, end: 201608
  7. CLOPIDOGREL [Suspect]
     Active Substance: CLOPIDOGREL BISULFATE
     Indication: Aortic dissection
     Dosage: 600 MILLIGRAM
     Route: 065
     Dates: start: 20160812, end: 201608
  8. CLOPIDOGREL [Suspect]
     Active Substance: CLOPIDOGREL BISULFATE
     Indication: Percutaneous coronary intervention
  9. DABIGATRAN [Suspect]
     Active Substance: DABIGATRAN
     Indication: Atrial fibrillation
     Dosage: UNK
     Route: 048
     Dates: start: 201601
  10. DABIGATRAN [Suspect]
     Active Substance: DABIGATRAN
     Dosage: UNK
     Route: 065
  11. DABIGATRAN [Suspect]
     Active Substance: DABIGATRAN
     Dosage: 150 MILLIGRAM, ONCE A DAY
     Route: 065
     Dates: start: 20160812
  12. DABIGATRAN [Suspect]
     Active Substance: DABIGATRAN
     Dosage: 100 MILLIGRAM, TWO TIMES A DAY
     Route: 065
  13. DABIGATRAN [Suspect]
     Active Substance: DABIGATRAN
     Dosage: 150 MILLIGRAM, TWO TIMES A DAY
     Route: 065
     Dates: start: 201603
  14. DABIGATRAN [Suspect]
     Active Substance: DABIGATRAN
     Dosage: 110 MILLIGRAM, EVERY OTHER DAY
     Route: 048
     Dates: start: 201601
  15. EPINEPHRINE [Suspect]
     Active Substance: EPINEPHRINE
     Indication: Post procedural haemorrhage
     Dosage: UNK, INCREASING DOSES
     Route: 065
  16. HEPARIN [Suspect]
     Active Substance: HEPARIN SODIUM
     Indication: Product used for unknown indication
     Dosage: UNK
     Route: 042
     Dates: start: 20160812
  17. NOREPINEPHRINE [Suspect]
     Active Substance: NOREPINEPHRINE
     Indication: Post procedural haemorrhage
     Dosage: UNK, (INCREASING DOSES)
     Route: 065
  18. XARELTO [Suspect]
     Active Substance: RIVAROXABAN
     Indication: Product used for unknown indication
     Dosage: 20 MILLIGRAM, ONCE A DAY
     Route: 065
     Dates: start: 201510
  19. LACIDIPINE [Concomitant]
     Active Substance: LACIDIPINE
     Indication: Hypertension
     Dosage: UNK
     Route: 065
  20. IPRATROPIUM BROMIDE [Concomitant]
     Active Substance: IPRATROPIUM BROMIDE
     Indication: Chronic obstructive pulmonary disease
     Dosage: UNK
     Route: 055
  21. FORMOTEROL [Concomitant]
     Active Substance: FORMOTEROL
     Indication: Product used for unknown indication
     Dosage: UNK
     Route: 055
  22. FORMOTEROL [Concomitant]
     Active Substance: FORMOTEROL
     Indication: Chronic obstructive pulmonary disease
  23. LEVOTHYROXINE [Concomitant]
     Active Substance: LEVOTHYROXINE
     Indication: Hypothyroidism
     Dosage: UNK
     Route: 065
  24. NOREPINEPHRINE [Concomitant]
     Active Substance: NOREPINEPHRINE
     Indication: Product used for unknown indication
     Dosage: UNK
     Route: 065
  25. PROTAMINE [Concomitant]
     Active Substance: PROTAMINE
     Indication: Post procedural haemorrhage
     Dosage: 50 MILLIGRAM 1 TOTAL
     Route: 065
     Dates: start: 201608
  26. PRAXBIND [Concomitant]
     Active Substance: IDARUCIZUMAB
     Indication: Product used for unknown indication
     Dosage: 2500 MILLIGRAM (2.5 G TWICE WITHIN 10 MINUTES)
     Route: 065
     Dates: start: 201608
  27. IDARUCIZUMAB [Concomitant]
     Active Substance: IDARUCIZUMAB
     Indication: Product used for unknown indication
     Dosage: 2.5 MILLIGRAM, TWO TIMES A DAY (2.5 MILLIGRAM (X2) WITHIN 10 MIN)
     Route: 065
  28. HEPARIN [Concomitant]
     Active Substance: HEPARIN SODIUM
     Indication: Product used for unknown indication
     Dosage: UNK
     Route: 042

REACTIONS (12)
  - Post procedural haemorrhage [Fatal]
  - Procedural haemorrhage [Fatal]
  - Shock [Fatal]
  - Shock haemorrhagic [Fatal]
  - Aortic dissection [Fatal]
  - Epistaxis [Fatal]
  - Haemorrhage [Fatal]
  - Haematoma [Fatal]
  - Product administration error [Fatal]
  - Acute coronary syndrome [Unknown]
  - Drug ineffective [Fatal]
  - Product use in unapproved indication [Unknown]

NARRATIVE: CASE EVENT DATE: 20160801
